FAERS Safety Report 9433188 (Version 1)
Quarter: 2013Q3

REPORT INFORMATION
  Report Type: Spontaneous
  Country: PH (occurrence: PH)
  Receive Date: 20130731
  Receipt Date: 20130731
  Transmission Date: 20140515
  Serious: Yes (Death, Hospitalization)
  Sender: FDA-Public Use
  Company Number: PH-BAXTER-2013BAX029604

PATIENT
  Sex: Male

DRUGS (1)
  1. DIANEAL PD2 WITH 4.25% DEXTROSE [Suspect]
     Indication: PERITONEAL DIALYSIS
     Route: 033
     Dates: start: 2012, end: 20130723

REACTIONS (3)
  - Septic shock [Fatal]
  - Ventricular arrhythmia [Fatal]
  - Convulsion [Unknown]
